FAERS Safety Report 23601045 (Version 1)
Quarter: 2024Q1

REPORT INFORMATION
  Report Type: Spontaneous
  Country: US (occurrence: US)
  Receive Date: 20240306
  Receipt Date: 20240306
  Transmission Date: 20240410
  Serious: Yes (Hospitalization, Other)
  Sender: FDA-Public Use
  Company Number: US-AMGEN-USASP2024043279

PATIENT

DRUGS (3)
  1. CARFILZOMIB [Suspect]
     Active Substance: CARFILZOMIB
     Indication: Plasma cell myeloma refractory
     Dosage: 70 MILLIGRAM/SQ. METER, Q4WK (DAY 1, 8, 15 EVERY 4 WEEKS)
     Route: 042
  2. DARATUMUMAB [Suspect]
     Active Substance: DARATUMUMAB
     Indication: Plasma cell myeloma refractory
     Dosage: 1800 MILLIGRAM, CYCLES 1 AND 2, EVERY 2 WEEKS FOR CYCLES 3-6
     Route: 058
  3. DEXAMETHASONE [Suspect]
     Active Substance: DEXAMETHASONE
     Indication: Plasma cell myeloma refractory
     Dosage: UNK, QWK, 20 MG (FOR AGE GREATER THAN 75 YEARS) OR 40 MG (FOR AGE LESS THAN OR EQUAL TO 75 YEARS) WE
     Route: 065

REACTIONS (21)
  - Unevaluable event [Unknown]
  - Hepatotoxicity [Unknown]
  - Chronic kidney disease [Unknown]
  - Acute kidney injury [Unknown]
  - Arrhythmia [Unknown]
  - Cardiac failure congestive [Unknown]
  - Plasma cell myeloma [Unknown]
  - Acute coronary syndrome [Unknown]
  - Leukopenia [Unknown]
  - Neutropenia [Unknown]
  - Thrombocytopenia [Unknown]
  - Febrile neutropenia [Unknown]
  - Neuropathy peripheral [Unknown]
  - Myocardial infarction [Unknown]
  - Gastrointestinal toxicity [Unknown]
  - Anaemia [Unknown]
  - Lymphopenia [Unknown]
  - Hypertension [Unknown]
  - Toxicity to various agents [Unknown]
  - Infection [Unknown]
  - Therapy partial responder [Unknown]
